FAERS Safety Report 18709587 (Version 2)
Quarter: 2021Q1

REPORT INFORMATION
  Report Type: Report from Study
  Country: AR (occurrence: AR)
  Receive Date: 20210106
  Receipt Date: 20210120
  Transmission Date: 20210419
  Serious: Yes (Hospitalization)
  Sender: FDA-Public Use
  Company Number: AR-TAKEDA-2021TUS000633

PATIENT
  Age: 11 Year
  Sex: Female
  Weight: 44.8 kg

DRUGS (1)
  1. VELAGLUCERASE ALFA [Suspect]
     Active Substance: VELAGLUCERASE ALFA
     Indication: PRODUCT USED FOR UNKNOWN INDICATION
     Dosage: 60 MILLIGRAM/KILOGRAM, Q2WEEKS, ENDOVENOUS ROUTE
     Route: 042
     Dates: start: 20140709

REACTIONS (4)
  - Nausea [Unknown]
  - Vomiting [Unknown]
  - Road traffic accident [Unknown]
  - Abdominal pain [Unknown]

NARRATIVE: CASE EVENT DATE: 20201231
